FAERS Safety Report 6146402-7 (Version None)
Quarter: 2009Q2

REPORT INFORMATION
  Report Type: 
  Country: None (occurrence: None)
  Receive Date: 20090407
  Receipt Date: 20090407
  Transmission Date: 20091009
  Serious: Yes (Hospitalization)
  Sender: FDA-Public Use
  Company Number: PHHO2005FR10932

PATIENT
  Sex: Female
  Weight: 65 kg

DRUGS (5)
  1. CGS 20267 T30748+ [Suspect]
     Indication: BREAST CANCER
     Dosage: 2.5 MG, QD-2 YEARS
     Route: 048
     Dates: start: 20001215
  2. TAMOXIFEN CITRATE [Suspect]
     Dosage: 20 MG, QD
  3. UN-ALFA [Suspect]
     Indication: PARATHYROIDECTOMY
     Dosage: 1MG 2/DAY
     Dates: start: 19880101
  4. LEVOTHYROXINE SODIUM [Concomitant]
     Indication: THYROIDECTOMY
     Dates: start: 19880101
  5. VITAMIN D [Concomitant]

REACTIONS (3)
  - HYPERCALCAEMIA [None]
  - NEPHROCALCINOSIS [None]
  - RENAL FAILURE [None]
